FAERS Safety Report 5655642-2 (Version None)
Quarter: 2008Q1

REPORT INFORMATION
  Report Type: 
  Country: None (occurrence: None)
  Receive Date: 20080307
  Receipt Date: 20080226
  Transmission Date: 20080703
  Serious: Yes (Hospitalization, Other)
  Sender: FDA-Public Use
  Company Number: FR-WYE-H02981908

PATIENT
  Sex: Male

DRUGS (5)
  1. EUPANTOL [Suspect]
     Dosage: ^DF^
     Route: 042
     Dates: start: 20071128
  2. LEVOTHYROX [Suspect]
     Dosage: ^DF^
     Route: 048
  3. HYDROCORTISONE [Suspect]
     Dosage: UNKNOWN
     Route: 042
     Dates: start: 20071128
  4. AMBISOME [Suspect]
     Indication: INFECTION
     Dosage: ^DF^
     Route: 042
     Dates: start: 20071027, end: 20071216
  5. TIENAM [Suspect]
     Dosage: ^DF^
     Route: 042
     Dates: start: 20071128

REACTIONS (1)
  - RENAL FAILURE ACUTE [None]
